FAERS Safety Report 23395758 (Version 2)
Quarter: 2024Q1

REPORT INFORMATION
  Report Type: Spontaneous
  Country: US (occurrence: US)
  Receive Date: 20240112
  Receipt Date: 20240212
  Transmission Date: 20240409
  Serious: No
  Sender: FDA-Public Use
  Company Number: US-MSNLABS-2024MSNSPO00019

PATIENT

DRUGS (3)
  1. PREGABALIN [Suspect]
     Active Substance: PREGABALIN
     Indication: Headache
     Route: 048
  2. PREGABALIN [Suspect]
     Active Substance: PREGABALIN
     Indication: Musculoskeletal discomfort
  3. PREGABALIN [Suspect]
     Active Substance: PREGABALIN
     Dosage: ABOUT 02 WEEKS AGO
     Route: 048
     Dates: start: 20240108

REACTIONS (6)
  - Product substitution issue [Unknown]
  - Drug ineffective [Not Recovered/Not Resolved]
  - Headache [Not Recovered/Not Resolved]
  - Flatulence [Unknown]
  - Insomnia [Unknown]
  - Gastrointestinal disorder [None]

NARRATIVE: CASE EVENT DATE: 20240123
